FAERS Safety Report 14331496 (Version 3)
Quarter: 2019Q2

REPORT INFORMATION
  Report Type: Spontaneous
  Country: KR (occurrence: KR)
  Receive Date: 20171228
  Receipt Date: 20190506
  Transmission Date: 20190711
  Serious: Yes (Hospitalization)
  Sender: FDA-Public Use
  Company Number: KR-ROCHE-2045783

PATIENT
  Age: 15 Year
  Sex: Female

DRUGS (2)
  1. XOLAIR [Suspect]
     Active Substance: OMALIZUMAB
     Indication: ASTHMA
     Dosage: 4 VIALS FOR EVERY 4 WEEKS 5-6 TIMES
     Route: 058
     Dates: start: 20180406, end: 20180409
  2. XOLAIR [Suspect]
     Active Substance: OMALIZUMAB
     Dosage: 2 DF, BIW
     Route: 058
     Dates: start: 20180509, end: 20180509

REACTIONS (6)
  - Hypoaesthesia [Recovered/Resolved]
  - Dyspnoea [Unknown]
  - Hyperventilation [Unknown]
  - Anaphylactic reaction [Recovered/Resolved]
  - Arthralgia [Unknown]
  - Chest discomfort [Unknown]

NARRATIVE: CASE EVENT DATE: 20180406
